FAERS Safety Report 24307729 (Version 4)
Quarter: 2025Q1

REPORT INFORMATION
  Report Type: Spontaneous
  Country: US (occurrence: US)
  Receive Date: 20240911
  Receipt Date: 20250103
  Transmission Date: 20250409
  Serious: No
  Sender: PFIZER
  Company Number: US-PFIZER INC-202400251846

PATIENT
  Age: 7 Year
  Sex: Female

DRUGS (1)
  1. GENOTROPIN [Suspect]
     Active Substance: SOMATROPIN
     Dosage: 0.7 MG INJECTED DAILY
     Route: 051

REACTIONS (2)
  - Incorrect dose administered by device [Unknown]
  - Device breakage [Unknown]
